FAERS Safety Report 15862360 (Version 1)
Quarter: 2019Q1

REPORT INFORMATION
  Report Type: Spontaneous
  Country: US (occurrence: US)
  Receive Date: 20190118
  Receipt Date: 20190118
  Transmission Date: 20190417
  Serious: Yes (Hospitalization)
  Sender: FDA-Public Use
  Company Number: None

PATIENT
  Age: 71 Year
  Sex: Female
  Weight: 55 kg

DRUGS (1)
  1. YESCARTA [Suspect]
     Active Substance: AXICABTAGENE CILOLEUCEL
     Indication: DIFFUSE LARGE B-CELL LYMPHOMA
     Dosage: 2X10^6 PER KG MAX 2X10^8 ONCE IV
     Route: 042
     Dates: start: 20181210

REACTIONS (7)
  - Neurotoxicity [None]
  - Serum ferritin abnormal [None]
  - Toxic encephalopathy [None]
  - Toxicity to various agents [None]
  - Product dose omission [None]
  - Metabolic encephalopathy [None]
  - Hallucination, visual [None]
